FAERS Safety Report 14317797 (Version 1)
Quarter: 2017Q4

REPORT INFORMATION
  Report Type: Spontaneous
  Country: US (occurrence: US)
  Receive Date: 20171221
  Receipt Date: 20171221
  Transmission Date: 20180321
  Serious: Yes (Life-Threatening, Other)
  Sender: FDA-Public Use
  Company Number: None

PATIENT
  Age: 52 Year
  Sex: Male
  Weight: 84.15 kg

DRUGS (2)
  1. LIMBREL [Suspect]
     Active Substance: DIETARY SUPPLEMENT\FLAVOCOXID
     Indication: INFLAMMATION
     Dosage: ?          QUANTITY:1 CAPSULE(S);?
     Route: 048
  2. LIMBREL [Suspect]
     Active Substance: DIETARY SUPPLEMENT\FLAVOCOXID
     Indication: PAIN
     Dosage: ?          QUANTITY:1 CAPSULE(S);?
     Route: 048

REACTIONS (2)
  - Dyspnoea [None]
  - Fatigue [None]

NARRATIVE: CASE EVENT DATE: 20170501
